FAERS Safety Report 17348447 (Version 1)
Quarter: 2020Q1

REPORT INFORMATION
  Report Type: Spontaneous
  Country: CA (occurrence: CA)
  Receive Date: 20200130
  Receipt Date: 20200130
  Transmission Date: 20200409
  Serious: Yes (Other)
  Sender: FDA-Public Use
  Company Number: CA-ABBVIE-20K-028-3256896-00

PATIENT
  Sex: Female

DRUGS (2)
  1. HUMIRA [Suspect]
     Active Substance: ADALIMUMAB
     Indication: RHEUMATOID ARTHRITIS
     Route: 058
  2. METHOTREXATE. [Suspect]
     Active Substance: METHOTREXATE
     Indication: PRODUCT USED FOR UNKNOWN INDICATION
     Route: 065

REACTIONS (10)
  - Pulmonary fibrosis [Unknown]
  - Pneumonia [Unknown]
  - Drug ineffective [Unknown]
  - Gait inability [Unknown]
  - Adhesion [Unknown]
  - Lung disorder [Unknown]
  - Arthritis [Unknown]
  - Interstitial lung disease [Unknown]
  - Pneumonitis [Unknown]
  - Rheumatoid arthritis [Unknown]
